FAERS Safety Report 4877887-1 (Version None)
Quarter: 2006Q1

REPORT INFORMATION
  Report Type: 
  Country: None (occurrence: None)
  Receive Date: 20060109
  Receipt Date: 20060104
  Transmission Date: 20060701
  Serious: Yes (Other)
  Sender: FDA-Public Use
  Company Number: 200610028BWH

PATIENT

DRUGS (1)
  1. CIPRO [Suspect]

REACTIONS (1)
  - OPTIC NEURITIS [None]
